FAERS Safety Report 20495570 (Version 2)
Quarter: 2022Q1

REPORT INFORMATION
  Report Type: Spontaneous
  Country: US (occurrence: US)
  Receive Date: 20220221
  Receipt Date: 20220328
  Transmission Date: 20220423
  Serious: Yes (Hospitalization, Other)
  Sender: FDA-Public Use
  Company Number: US-SMITH AND NEPHEW, INC-2022SMT00027

PATIENT
  Age: 21 Year
  Sex: Male
  Weight: 63.492 kg

DRUGS (10)
  1. COLLAGENASE SANTYL [Suspect]
     Active Substance: COLLAGENASE CLOSTRIDIUM HISTOLYTICUM
     Indication: Buttock injury
     Dosage: UNK, 3X/DAY WHEN HE IS CHANGED
     Route: 061
     Dates: start: 202106
  2. BACLOFEN [Concomitant]
     Active Substance: BACLOFEN
     Dosage: 5 MG, 2X/DAY
  3. FERROUS SULFATE [Concomitant]
     Active Substance: FERROUS SULFATE
     Dosage: 65 MG, 1X/DAY
  4. PROBIOTIC CUTERAL [Concomitant]
     Dosage: 1 PER DAY
  5. TAB-A-VITE [Concomitant]
     Dosage: 1 PER DAY
  6. ZOLOFT [Concomitant]
     Active Substance: SERTRALINE HYDROCHLORIDE
     Dosage: 1/2 TAB, 1X/DAY
  7. BACTRIM DS [Concomitant]
     Active Substance: SULFAMETHOXAZOLE\TRIMETHOPRIM
     Dosage: 1 UNK, 2X/DAY
  8. ZINC [Concomitant]
     Active Substance: ZINC
     Dosage: 50 MG, 1X/DAY
  9. VITAMIN C [Concomitant]
     Active Substance: ASCORBIC ACID
     Dosage: 500 UNK
  10. VITAMIN D3 [Concomitant]
     Active Substance: CHOLECALCIFEROL
     Dosage: 2000 IU, 1X/DAY

REACTIONS (4)
  - Sepsis [Recovered/Resolved]
  - Wound infection [Unknown]
  - Depression [Not Recovered/Not Resolved]
  - Wound drainage [Unknown]

NARRATIVE: CASE EVENT DATE: 20210601
